FAERS Safety Report 9246771 (Version 1)
Quarter: 2013Q2

REPORT INFORMATION
  Report Type: Report from Study
  Country: US (occurrence: US)
  Receive Date: 20130422
  Receipt Date: 20130422
  Transmission Date: 20140414
  Serious: No
  Sender: FDA-Public Use
  Company Number: US-ABBOTT-12P-163-0946725-00

PATIENT
  Sex: Male

DRUGS (4)
  1. LUPRON DEPOT [Suspect]
     Indication: PRECOCIOUS PUBERTY
     Dates: start: 201010, end: 201011
  2. LUPRON DEPOT [Suspect]
     Dates: start: 201012, end: 201106
  3. LUPRON DEPOT [Suspect]
     Dates: start: 201106
  4. LUPRON DEPOT [Suspect]
     Dates: start: 201201

REACTIONS (2)
  - Acne [Unknown]
  - Acne [Unknown]
